FAERS Safety Report 6010708-2 (Version None)
Quarter: 2008Q4

REPORT INFORMATION
  Report Type: 
  Country: None (occurrence: None)
  Receive Date: 20081218
  Receipt Date: 20081211
  Transmission Date: 20090506
  Serious: Yes (Other)
  Sender: FDA-Public Use
  Company Number: US-AMGEN-QUU322483

PATIENT
  Age: 28 Year
  Sex: Male
  Weight: 84.4 kg

DRUGS (8)
  1. NEULASTA [Suspect]
     Indication: CHEMOTHERAPY
     Route: 042
  2. ZOFRAN [Concomitant]
     Dates: start: 20081204, end: 20081204
  3. TUMS [Concomitant]
     Dates: start: 20081204, end: 20081204
  4. ADRIAMYCIN PFS [Concomitant]
     Dates: start: 20080918
  5. VELBAN [Concomitant]
     Dates: start: 20080918
  6. BLEOMYCIN SULFATE [Concomitant]
     Dates: start: 20080918
  7. DACARBAZINE [Concomitant]
     Dates: start: 20080918
  8. DECADRON [Concomitant]
     Dates: start: 20080918

REACTIONS (11)
  - BACK PAIN [None]
  - BLOOD PRESSURE ABNORMAL [None]
  - CHEST PAIN [None]
  - CONVULSION [None]
  - DIZZINESS [None]
  - DYSARTHRIA [None]
  - HYPERHIDROSIS [None]
  - NASOPHARYNGITIS [None]
  - SYNCOPE [None]
  - TREMOR [None]
  - URINARY INCONTINENCE [None]
